FAERS Safety Report 16276858 (Version 1)
Quarter: 2019Q2

REPORT INFORMATION
  Report Type: Spontaneous
  Country: US (occurrence: US)
  Receive Date: 20190506
  Receipt Date: 20190506
  Transmission Date: 20190711
  Serious: Yes (Other)
  Sender: FDA-Public Use
  Company Number: US-PFIZER INC-2016596858

PATIENT
  Age: 65 Year
  Sex: Female

DRUGS (16)
  1. ALBUTEROL;IPRATROPIUM [Concomitant]
     Dosage: UNK UNK, 4X/DAY, (2.5MG-0.5 MG/3ML INHALATION SOLUTION 3 MILIMITER(S) INHALED 4 TIMES A DAY)
  2. DEXILANT [Concomitant]
     Active Substance: DEXLANSOPRAZOLE
     Dosage: 30 MG, DAILY
     Route: 048
  3. LYRICA [Suspect]
     Active Substance: PREGABALIN
     Dosage: 25 MG, 3X/DAY (TAKE THREE CAPSULES BY MOUTH IN AM AND ONE CAPSULE BY MOUTH PM)
     Route: 048
  4. LEVOTHYROXINE SODIUM. [Concomitant]
     Active Substance: LEVOTHYROXINE SODIUM
     Dosage: 88 UG, DAILY
     Route: 048
  5. ATORVASTATIN CALCIUM. [Concomitant]
     Active Substance: ATORVASTATIN CALCIUM
     Dosage: UNK UNK, DAILY
     Route: 048
  6. FLAXSEED OIL [LINUM USITATISSIMUM SEED OIL] [Concomitant]
     Active Substance: HERBALS\LINSEED OIL
     Dosage: UNK
  7. LYRICA [Suspect]
     Active Substance: PREGABALIN
     Dosage: 150 MG, 2X/DAY
     Route: 048
  8. ALBUTEROL;IPRATROPIUM [Concomitant]
     Dosage: UNK, (5ML UNIT DOSE VIAL 0.9% STERILE SALINE, NEBULIZE 1 VIAL WITH 3ML)
  9. CALCIUM CARBONATE. [Concomitant]
     Active Substance: CALCIUM CARBONATE
     Route: 048
  10. MIRALAX [Concomitant]
     Active Substance: POLYETHYLENE GLYCOL 3350
     Dosage: 17 G, UNK, (17GRAM(S) BY MOUTH NIGHT @ AM)
  11. VITAMINS D3 [Concomitant]
     Dosage: UNK
     Route: 048
  12. PROLIA [Concomitant]
     Active Substance: DENOSUMAB
     Dosage: UNK,(1 MILIMITER(S) SUBCUTANEOUS EVERY 6 MONTHS)
     Route: 058
  13. ZOLPIDEM [Concomitant]
     Active Substance: ZOLPIDEM\ZOLPIDEM TARTRATE
     Dosage: UNK UNK, 1X/DAY
     Route: 048
  14. RESTASIS [Concomitant]
     Active Substance: CYCLOSPORINE
     Dosage: UNK UNK, 2X/DAY, (1 DROP(S) BOTH EYES EVERY 12 HOURS)
  15. SKELAXIN [METAXALONE] [Concomitant]
     Indication: PAIN
     Dosage: 800 MG, UNK, (AS NEEDED )
     Route: 048
  16. IPRATROPIUM BROMIDE. [Concomitant]
     Active Substance: IPRATROPIUM BROMIDE
     Dosage: UNK
     Route: 045

REACTIONS (4)
  - Product physical issue [Unknown]
  - Pharyngeal disorder [Unknown]
  - Sinus disorder [Unknown]
  - Acute kidney injury [Unknown]
